FAERS Safety Report 6190888-9 (Version None)
Quarter: 2009Q2

REPORT INFORMATION
  Report Type: 
  Country: None (occurrence: None)
  Receive Date: 20090514
  Receipt Date: 20090512
  Transmission Date: 20091009
  Serious: Yes (Other)
  Sender: FDA-Public Use
  Company Number: JP-B.I. PHARMACEUTICALS,INC./RIDGEFIELD-2009-BP-04229NB

PATIENT
  Age: 74 Year
  Sex: Male

DRUGS (1)
  1. MICARDIS [Suspect]
     Dosage: 40MG
     Route: 048
     Dates: start: 20090331, end: 20090401

REACTIONS (2)
  - CEREBRAL INFARCTION [None]
  - HICCUPS [None]
